FAERS Safety Report 7845698-0 (Version None)
Quarter: 2011Q4

REPORT INFORMATION
  Report Type: 
  Country: None (occurrence: None)
  Receive Date: 20111025
  Receipt Date: 20111020
  Transmission Date: 20120403
  Serious: Yes (Life-Threatening, Hospitalization)
  Sender: FDA-Public Use
  Company Number: US-B.I. PHARMACEUTICALS,INC./RIDGEFIELD-2009-BP-06887BP

PATIENT
  Sex: Female
  Weight: 102.5 kg

DRUGS (11)
  1. ADVAIR DISKUS 100/50 [Concomitant]
     Indication: CHRONIC OBSTRUCTIVE PULMONARY DISEASE
  2. NITROGLYCERIN [Concomitant]
  3. SPIRIVA [Suspect]
     Indication: CHRONIC OBSTRUCTIVE PULMONARY DISEASE
  4. SPIRIVA [Suspect]
     Indication: EMPHYSEMA
     Dosage: 18 MCG
     Route: 055
     Dates: start: 20040101
  5. ASPIRIN [Concomitant]
     Dosage: 81 MG
  6. DIOVAN [Concomitant]
  7. RESTASIS [Concomitant]
  8. SINGULAIR [Concomitant]
     Dosage: 10 MG
  9. FEXOFENADINE [Concomitant]
     Indication: HYPERSENSITIVITY
  10. ATROVENT [Concomitant]
  11. CARDIZEM [Concomitant]
     Dosage: 240 MG

REACTIONS (4)
  - PULMONARY EMBOLISM [None]
  - EYE PAIN [None]
  - PHLEBITIS [None]
  - BLADDER PROLAPSE [None]
